FAERS Safety Report 16334665 (Version 1)
Quarter: 2019Q2

REPORT INFORMATION
  Report Type: Spontaneous
  Country: PL (occurrence: PL)
  Receive Date: 20190520
  Receipt Date: 20190520
  Transmission Date: 20190711
  Serious: Yes (Other)
  Sender: FDA-Public Use
  Company Number: PL-BAUSCH-BL-2019-013851

PATIENT
  Age: 32 Year
  Sex: Male

DRUGS (13)
  1. METHOTREXATE. [Suspect]
     Active Substance: METHOTREXATE
     Indication: MYELODYSPLASTIC SYNDROME
  2. CICLOSPORIN [Suspect]
     Active Substance: CYCLOSPORINE
     Indication: PROPHYLAXIS AGAINST GRAFT VERSUS HOST DISEASE
     Route: 048
  3. DEXAMETHASONE. [Suspect]
     Active Substance: DEXAMETHASONE
     Indication: MYELOPROLIFERATIVE NEOPLASM
     Route: 048
  4. TACROLIMUS. [Suspect]
     Active Substance: TACROLIMUS
     Indication: MYELODYSPLASTIC SYNDROME
     Route: 065
  5. TACROLIMUS. [Suspect]
     Active Substance: TACROLIMUS
     Indication: MYELOPROLIFERATIVE NEOPLASM
  6. MELPHALAN. [Suspect]
     Active Substance: MELPHALAN
     Indication: MYELOPROLIFERATIVE NEOPLASM
     Route: 065
  7. FLUDARABINE [Suspect]
     Active Substance: FLUDARABINE PHOSPHATE
     Indication: MYELOPROLIFERATIVE NEOPLASM
  8. METHOTREXATE. [Suspect]
     Active Substance: METHOTREXATE
     Indication: MYELOPROLIFERATIVE NEOPLASM
     Route: 065
  9. SIROLIMUS. [Suspect]
     Active Substance: SIROLIMUS
     Indication: MYELODYSPLASTIC SYNDROME
     Route: 065
  10. SIROLIMUS. [Suspect]
     Active Substance: SIROLIMUS
     Indication: MYELOPROLIFERATIVE NEOPLASM
  11. DEXAMETHASONE. [Suspect]
     Active Substance: DEXAMETHASONE
     Indication: MYELODYSPLASTIC SYNDROME
     Route: 065
  12. MELPHALAN. [Suspect]
     Active Substance: MELPHALAN
     Indication: MYELODYSPLASTIC SYNDROME
  13. FLUDARABINE [Suspect]
     Active Substance: FLUDARABINE PHOSPHATE
     Indication: MYELODYSPLASTIC SYNDROME
     Route: 065

REACTIONS (7)
  - Pleural effusion [Recovered/Resolved]
  - Pyrexia [Unknown]
  - Condition aggravated [Unknown]
  - Erythema [Unknown]
  - Ulcer [Unknown]
  - Oral disorder [Unknown]
  - Chronic graft versus host disease [Unknown]

NARRATIVE: CASE EVENT DATE: 201901
